FAERS Safety Report 14317511 (Version 3)
Quarter: 2018Q1

REPORT INFORMATION
  Report Type: Spontaneous
  Country: IT (occurrence: IT)
  Receive Date: 20171222
  Receipt Date: 20180119
  Transmission Date: 20180509
  Serious: Yes (Hospitalization, Other)
  Sender: FDA-Public Use
  Company Number: IT-AUROBINDO-AUR-APL-2017-46502

PATIENT
  Age: 16 Year
  Sex: Female

DRUGS (10)
  1. LORAZEPAM 2.5MG FILM-COATED TABLETS [Interacting]
     Active Substance: LORAZEPAM
     Indication: INTENTIONAL SELF-INJURY
     Dosage: 75 MG, IN TOTAL
     Route: 048
     Dates: start: 20170905, end: 20170905
  2. VENLAFAXINE [Suspect]
     Active Substance: VENLAFAXINE HYDROCHLORIDE
     Indication: INTENTIONAL SELF-INJURY
     Dosage: 150 MG, IN TOTAL
     Route: 048
     Dates: start: 20170905, end: 20170905
  3. RISPERDAL [Suspect]
     Active Substance: RISPERIDONE
     Indication: INTELLECTUAL DISABILITY
  4. LORMETAZEPAM [Interacting]
     Active Substance: LORMETAZEPAM
     Indication: INTENTIONAL SELF-INJURY
     Dosage: IN TOTAL
     Route: 048
     Dates: start: 20170905, end: 20170905
  5. RISPERDAL [Suspect]
     Active Substance: RISPERIDONE
     Indication: ATTENTION DEFICIT/HYPERACTIVITY DISORDER
     Dosage: DOSAGE FORM: SOLUTION ; IN TOTAL
     Route: 048
     Dates: start: 20170905, end: 20170905
  6. DEPAKIN [Concomitant]
     Active Substance: VALPROATE SODIUM
     Indication: ATTENTION DEFICIT/HYPERACTIVITY DISORDER
     Dosage: DOSAGE FORM: SOLUTION ()
     Route: 048
  7. TRIAZOLAM. [Interacting]
     Active Substance: TRIAZOLAM
     Indication: INTENTIONAL SELF-INJURY
     Dosage: IN TOTAL
     Route: 048
     Dates: start: 20170905, end: 20170905
  8. ZOLPIDEM [Suspect]
     Active Substance: ZOLPIDEM\ZOLPIDEM TARTRATE
     Indication: PRODUCT USED FOR UNKNOWN INDICATION
     Dosage: IN TOTAL
     Route: 065
     Dates: start: 20170905, end: 20170905
  9. DEPAKIN [Concomitant]
     Active Substance: VALPROATE SODIUM
     Indication: INTELLECTUAL DISABILITY
  10. ALCOHOL. [Interacting]
     Active Substance: ALCOHOL
     Indication: PRODUCT USED FOR UNKNOWN INDICATION
     Dosage: DOSAGE FORM: UNSPECIFIED (1) ; IN TOTAL
     Route: 048
     Dates: start: 20170905, end: 20170905

REACTIONS (13)
  - Loss of consciousness [Unknown]
  - Intentional self-injury [Unknown]
  - Aphasia [Unknown]
  - Drug abuse [Unknown]
  - Overdose [Unknown]
  - Concomitant disease aggravated [Unknown]
  - Attention deficit/hyperactivity disorder [Unknown]
  - Alcohol interaction [Unknown]
  - Intellectual disability [Unknown]
  - Drug interaction [Unknown]
  - Contraindicated product administered [Unknown]
  - Sopor [Unknown]
  - Intentional product misuse [Unknown]

NARRATIVE: CASE EVENT DATE: 20170905
